FAERS Safety Report 19648009 (Version 2)
Quarter: 2021Q4

REPORT INFORMATION
  Report Type: Spontaneous
  Country: US (occurrence: US)
  Receive Date: 20210802
  Receipt Date: 20211122
  Transmission Date: 20220303
  Serious: Yes (Other)
  Sender: FDA-Public Use
  Company Number: US-GILEAD-2021-0542352

PATIENT
  Age: 56 Year
  Sex: Male
  Weight: 108.84 kg

DRUGS (76)
  1. VIREAD [Suspect]
     Active Substance: TENOFOVIR DISOPROXIL FUMARATE
     Indication: HIV infection
     Dosage: UNK
     Route: 048
     Dates: start: 2002
  2. VIREAD [Suspect]
     Active Substance: TENOFOVIR DISOPROXIL FUMARATE
     Dosage: UNK
     Route: 048
     Dates: start: 20060306, end: 20160616
  3. GENVOYA [Concomitant]
     Active Substance: COBICISTAT\ELVITEGRAVIR\EMTRICITABINE\TENOFOVIR ALAFENAMIDE FUMARATE
  4. EDURANT [Concomitant]
     Active Substance: RILPIVIRINE HYDROCHLORIDE
  5. ISENTRESS [Concomitant]
     Active Substance: RALTEGRAVIR POTASSIUM
  6. JULUCA [Concomitant]
     Active Substance: DOLUTEGRAVIR SODIUM\RILPIVIRINE HYDROCHLORIDE
  7. KALETRA [Concomitant]
     Active Substance: LOPINAVIR\RITONAVIR
  8. PREZCOBIX [Concomitant]
     Active Substance: COBICISTAT\DARUNAVIR ETHANOLATE
  9. PREZISTA [Concomitant]
     Active Substance: DARUNAVIR ETHANOLATE
  10. VIRAMUNE [Concomitant]
     Active Substance: NEVIRAPINE
  11. AGENERASE [Concomitant]
     Active Substance: AMPRENAVIR
  12. ALL DAY ALLERGY [Concomitant]
     Active Substance: CETIRIZINE HYDROCHLORIDE
  13. ALPRAZOLAM [Concomitant]
     Active Substance: ALPRAZOLAM
  14. AMMONIUM LACTATE [Concomitant]
     Active Substance: AMMONIUM LACTATE
  15. AMOXICILLIN [Concomitant]
     Active Substance: AMOXICILLIN
  16. ASPIRIN [Concomitant]
     Active Substance: ASPIRIN
  17. ATORVASTATIN [Concomitant]
     Active Substance: ATORVASTATIN
  18. CALCITRIOL [Concomitant]
     Active Substance: CALCITRIOL
  19. CALCIUM [Concomitant]
     Active Substance: CALCIUM
  20. CALTRATE WITH VITAMIN D [Concomitant]
     Active Substance: CALCIUM CARBONATE\CHOLECALCIFEROL
  21. CETIRIZINE [Concomitant]
     Active Substance: CETIRIZINE HYDROCHLORIDE
  22. CHLORHEXIDINE [Concomitant]
     Active Substance: CHLORHEXIDINE
  23. OXYMETAZOLINE HYDROCHLORIDE [Concomitant]
     Active Substance: OXYMETAZOLINE HYDROCHLORIDE
  24. CLOBETASOL [Concomitant]
     Active Substance: CLOBETASOL
  25. CLONAZEPAM [Concomitant]
     Active Substance: CLONAZEPAM
  26. CLONIDINE [Concomitant]
     Active Substance: CLONIDINE
  27. CYMBALTA [Concomitant]
     Active Substance: DULOXETINE HYDROCHLORIDE
  28. DEPO-TESTOSTERONE [Concomitant]
     Active Substance: TESTOSTERONE CYPIONATE
  29. DEXAMETHASONE [Concomitant]
     Active Substance: DEXAMETHASONE
  30. DICLOFENAC [Concomitant]
     Active Substance: DICLOFENAC
  31. DIPHENOXYLATE [Concomitant]
     Active Substance: DIPHENOXYLATE
  32. ATROPINE\DIPHENOXYLATE [Concomitant]
     Active Substance: ATROPINE\DIPHENOXYLATE
  33. DOXAZOSIN [Concomitant]
     Active Substance: DOXAZOSIN MESYLATE
  34. DRONABINOL [Concomitant]
     Active Substance: DRONABINOL
  35. DULOXETINE [Concomitant]
     Active Substance: DULOXETINE
  36. ECOTRIN [Concomitant]
     Active Substance: ASPIRIN
  37. ENALAPRIL [Concomitant]
     Active Substance: ENALAPRIL
  38. ERGOCALCIFEROL [Concomitant]
     Active Substance: ERGOCALCIFEROL
  39. FENOFIBRIC ACID [Concomitant]
     Active Substance: FENOFIBRIC ACID
  40. FULYZAQ [Concomitant]
     Active Substance: CROFELEMER
  41. GEODON [Concomitant]
     Active Substance: ZIPRASIDONE HYDROCHLORIDE\ZIPRASIDONE MESYLATE
  42. HYDROCODONE [Concomitant]
     Active Substance: HYDROCODONE
  43. ITRACONAZOLE [Concomitant]
     Active Substance: ITRACONAZOLE
  44. KETOCONAZOLE [Concomitant]
     Active Substance: KETOCONAZOLE
  45. LAMICTAL [Concomitant]
     Active Substance: LAMOTRIGINE
  46. LAMOTRIGINE [Concomitant]
     Active Substance: LAMOTRIGINE
  47. LIDOCAINE [Concomitant]
     Active Substance: LIDOCAINE
  48. LOPERAMIDE HYDROCHLORIDE [Concomitant]
     Active Substance: LOPERAMIDE HYDROCHLORIDE
  49. LORATADINE [Concomitant]
     Active Substance: LORATADINE
  50. LOTEPREDNOL ETABONATE [Concomitant]
     Active Substance: LOTEPREDNOL ETABONATE
  51. LYRICA [Concomitant]
     Active Substance: PREGABALIN
  52. ALLOPURINOL [Concomitant]
     Active Substance: ALLOPURINOL
  53. METHYLPREDNISOLONE [Concomitant]
     Active Substance: METHYLPREDNISOLONE
  54. MOMETASONE [Concomitant]
     Active Substance: MOMETASONE
  55. NASONEX [Concomitant]
     Active Substance: MOMETASONE FUROATE
  56. NEVIRAPINE [Concomitant]
     Active Substance: NEVIRAPINE
  57. NEXIUM I.V. [Concomitant]
     Active Substance: ESOMEPRAZOLE SODIUM
  58. OLANZAPINE [Concomitant]
     Active Substance: OLANZAPINE
  59. ONDANSETRON [Concomitant]
     Active Substance: ONDANSETRON
  60. PEG 3350 [Concomitant]
     Active Substance: POLYETHYLENE GLYCOL 3350
  61. PERIDEX [CHLORHEXIDINE GLUCONATE] [Concomitant]
  62. PREGABALIN [Concomitant]
     Active Substance: PREGABALIN
  63. PROMETHAZINE [Concomitant]
     Active Substance: PROMETHAZINE HYDROCHLORIDE
  64. TAMSULOSIN [Concomitant]
     Active Substance: TAMSULOSIN
  65. TESTOSTERONE [Concomitant]
     Active Substance: TESTOSTERONE
  66. TESTOSTERONE CYPIONATE [Concomitant]
     Active Substance: TESTOSTERONE CYPIONATE
  67. TRIAMTERENE [Concomitant]
     Active Substance: TRIAMTERENE
  68. ADENOSINE [Concomitant]
     Active Substance: ADENOSINE
  69. TRILIPIX [Concomitant]
     Active Substance: FENOFIBRIC ACID
  70. VALACYCLOVIR HYDROCHLORIDE [Concomitant]
     Active Substance: VALACYCLOVIR HYDROCHLORIDE
  71. VALTREX [Concomitant]
     Active Substance: VALACYCLOVIR HYDROCHLORIDE
  72. VITAMIN D2 [Concomitant]
     Active Substance: ERGOCALCIFEROL
  73. DICLOFENAC POTASSIUM [Concomitant]
     Active Substance: DICLOFENAC POTASSIUM
  74. ZOFRAN ODT [Concomitant]
     Active Substance: ONDANSETRON HYDROCHLORIDE
  75. ZYPREXA [Concomitant]
     Active Substance: OLANZAPINE
  76. ZYRTEC [Concomitant]
     Active Substance: CETIRIZINE HYDROCHLORIDE

REACTIONS (13)
  - Osteoporosis [Not Recovered/Not Resolved]
  - Spinal compression fracture [Not Recovered/Not Resolved]
  - Chronic kidney disease [Not Recovered/Not Resolved]
  - Bipolar disorder [Unknown]
  - Renal failure [Unknown]
  - Rib fracture [Unknown]
  - Bone density decreased [Unknown]
  - Emotional distress [Not Recovered/Not Resolved]
  - Anhedonia [Not Recovered/Not Resolved]
  - Anxiety [Not Recovered/Not Resolved]
  - Pain [Not Recovered/Not Resolved]
  - Osteopenia [Not Recovered/Not Resolved]
  - Hypertension [Unknown]

NARRATIVE: CASE EVENT DATE: 20130901
